FAERS Safety Report 9832091 (Version 1)
Quarter: 2014Q1

REPORT INFORMATION
  Report Type: Report from Study
  Country: AR (occurrence: AR)
  Receive Date: 20140121
  Receipt Date: 20140121
  Transmission Date: 20141002
  Serious: Yes (Other)
  Sender: FDA-Public Use
  Company Number: PHHY2014AR005639

PATIENT
  Sex: Female

DRUGS (3)
  1. DIOVAN [Suspect]
     Indication: HYPERTENSION
     Dosage: UNK DF, 1 DF (160) A DAY OR 1.5 DF (ONE TABLET OF 160 AND HALF TABET OF 320)
     Route: 048
  2. DIOVAN [Suspect]
     Indication: ARRHYTHMIA
  3. DIOVAN [Suspect]
     Indication: OFF LABEL USE

REACTIONS (6)
  - Breast cancer [Recovered/Resolved]
  - Hearing impaired [Not Recovered/Not Resolved]
  - Ear discomfort [Not Recovered/Not Resolved]
  - Gait disturbance [Not Recovered/Not Resolved]
  - Osteoarthritis [Not Recovered/Not Resolved]
  - Wrong technique in drug usage process [Unknown]
